FAERS Safety Report 20708011 (Version 1)
Quarter: 2022Q2

REPORT INFORMATION
  Report Type: Spontaneous
  Country: US (occurrence: None)
  Receive Date: 20220414
  Receipt Date: 20220414
  Transmission Date: 20220721
  Serious: No
  Sender: FDA-Public Use
  Company Number: 2022A125274

PATIENT
  Sex: Male
  Weight: 97.5 kg

DRUGS (3)
  1. FARXIGA [Suspect]
     Active Substance: DAPAGLIFLOZIN PROPANEDIOL
     Indication: Type 1 diabetes mellitus
     Route: 048
     Dates: start: 202202
  2. FARXIGA [Suspect]
     Active Substance: DAPAGLIFLOZIN PROPANEDIOL
     Indication: Type 1 diabetes mellitus
     Route: 048
  3. BYDUREON BCISE [Suspect]
     Active Substance: EXENATIDE
     Indication: Type 1 diabetes mellitus
     Route: 058

REACTIONS (2)
  - Headache [Not Recovered/Not Resolved]
  - Therapeutic product effect decreased [Unknown]
